FAERS Safety Report 14906694 (Version 1)
Quarter: 2018Q2

REPORT INFORMATION
  Report Type: Spontaneous
  Country: US (occurrence: US)
  Receive Date: 20180517
  Receipt Date: 20180517
  Transmission Date: 20180711
  Serious: No
  Sender: FDA-Public Use
  Company Number: US-SA-2017SA041392

PATIENT
  Sex: Female

DRUGS (3)
  1. NOVOLOG [Concomitant]
     Active Substance: INSULIN ASPART
  2. LANTUS [Suspect]
     Active Substance: INSULIN GLARGINE
     Indication: DIABETES MELLITUS
     Dosage: TOOK 32 UNITS FOR FIRST DOSE. WILL CALL HER HCP REGARDING HER DOSE THIS AFTERNOON DOSE:32 UNIT(S)
     Route: 065
     Dates: start: 20170309
  3. NOVOLIN [Concomitant]
     Active Substance: INSULIN HUMAN
     Dosage: SLIDING SCALE FOR MEAL TIMES DOSE:35 UNIT(S)

REACTIONS (1)
  - Off label use [Unknown]
